FAERS Safety Report 15364640 (Version 2)
Quarter: 2018Q3

REPORT INFORMATION
  Report Type: Report from Study
  Country: None (occurrence: US)
  Receive Date: 20180910
  Receipt Date: 20180918
  Transmission Date: 20181010
  Serious: Yes (Hospitalization, Other)
  Sender: FDA-Public Use
  Company Number: US-ABBVIE-18K-163-2463559-00

PATIENT
  Sex: Female

DRUGS (3)
  1. HUMIRA [Suspect]
     Active Substance: ADALIMUMAB
     Route: 058
     Dates: start: 20180813
  2. HUMIRA [Suspect]
     Active Substance: ADALIMUMAB
     Indication: PSORIASIS
     Route: 058
     Dates: start: 2017, end: 201805
  3. METHOTREXATE. [Suspect]
     Active Substance: METHOTREXATE
     Indication: PRODUCT USED FOR UNKNOWN INDICATION
     Route: 065

REACTIONS (15)
  - General physical condition abnormal [Unknown]
  - Haematemesis [Unknown]
  - Frustration tolerance decreased [Unknown]
  - Impaired quality of life [Unknown]
  - Pruritus [Unknown]
  - Skin irritation [Unknown]
  - Emotional distress [Unknown]
  - Arthralgia [Unknown]
  - Pain of skin [Unknown]
  - Post procedural infection [Recovered/Resolved]
  - Skin discolouration [Unknown]
  - Anger [Unknown]
  - Drug effect incomplete [Recovering/Resolving]
  - Adverse drug reaction [Unknown]
  - Oophorectomy [Recovered/Resolved]

NARRATIVE: CASE EVENT DATE: 2018
